FAERS Safety Report 20615456 (Version 1)
Quarter: 2022Q1

REPORT INFORMATION
  Report Type: Report from Study
  Country: US (occurrence: US)
  Receive Date: 20220321
  Receipt Date: 20220321
  Transmission Date: 20220423
  Serious: Yes (Other)
  Sender: FDA-Public Use
  Company Number: 2021-US-016021

PATIENT
  Age: 62 Year
  Sex: Female

DRUGS (3)
  1. XYREM [Suspect]
     Active Substance: SODIUM OXYBATE
     Indication: Narcolepsy
     Dosage: 1.5 GRAM, BID
     Route: 048
     Dates: start: 200602, end: 200911
  2. XYREM [Suspect]
     Active Substance: SODIUM OXYBATE
     Indication: Cataplexy
     Dosage: DOSE ADJUSTMENT
     Route: 048
     Dates: start: 200911, end: 201107
  3. XYREM [Suspect]
     Active Substance: SODIUM OXYBATE
     Dosage: 3G FIRST DOSE, 1.5 G SECOND DOSE
     Route: 048
     Dates: start: 201107

REACTIONS (4)
  - Transient ischaemic attack [Unknown]
  - Chronic obstructive pulmonary disease [Unknown]
  - Dyspepsia [Unknown]
  - Sciatica [Recovered/Resolved]

NARRATIVE: CASE EVENT DATE: 20201001
